FAERS Safety Report 9845317 (Version 1)
Quarter: 2014Q1

REPORT INFORMATION
  Report Type: Report from Study
  Country: AT (occurrence: AT)
  Receive Date: 20140127
  Receipt Date: 20140127
  Transmission Date: 20141002
  Serious: Yes (Other)
  Sender: FDA-Public Use
  Company Number: AT-ROCHE-1337727

PATIENT
  Age: 79 Year
  Sex: Female
  Weight: 72 kg

DRUGS (4)
  1. RITUXIMAB [Suspect]
     Indication: DIFFUSE LARGE B-CELL LYMPHOMA STAGE III
     Route: 042
  2. LEUSTATIN [Suspect]
     Indication: PRODUCT USED FOR UNKNOWN INDICATION
     Dosage: ADMINISTERED DAILY FOR 5 DAYS
     Route: 065
  3. MEXALEN [Concomitant]
     Route: 054
  4. DIBONDRIN [Concomitant]
     Route: 042

REACTIONS (2)
  - Bone marrow toxicity [Unknown]
  - Chills [Unknown]
